FAERS Safety Report 14947166 (Version 2)
Quarter: 2018Q2

REPORT INFORMATION
  Report Type: Spontaneous
  Country: US (occurrence: US)
  Receive Date: 20180529
  Receipt Date: 20180619
  Transmission Date: 20180711
  Serious: Yes (Other)
  Sender: FDA-Public Use
  Company Number: US-RISING PHARMACEUTICALS, INC.-2018RIS00255

PATIENT
  Age: 28 Year
  Sex: Male
  Weight: 51 kg

DRUGS (5)
  1. PARACETAMOL [Concomitant]
     Active Substance: ACETAMINOPHEN
     Dosage: UNK
     Route: 065
     Dates: start: 20110221, end: 20110221
  2. PANTOPRAZOLE [Concomitant]
     Active Substance: PANTOPRAZOLE
     Dosage: UNK
     Route: 065
     Dates: start: 20110221, end: 20110225
  3. BECADEXAMIN [Concomitant]
     Dosage: UNK
     Route: 065
     Dates: start: 20110221, end: 20110225
  4. LEVOFLOXACIN. [Suspect]
     Active Substance: LEVOFLOXACIN
     Indication: URINARY TRACT INFECTION
     Dosage: 750 MG, 1X/DAY (INFUSED OVER 90 MINUTES)
     Route: 042
     Dates: start: 20110221, end: 20110222
  5. PROTHIADONE [Concomitant]
     Indication: DEPRESSION
     Dosage: 25 MG, 1X/DAY
     Route: 065
     Dates: start: 20110222, end: 20110223

REACTIONS (1)
  - Seizure [Recovered/Resolved]

NARRATIVE: CASE EVENT DATE: 20110222
